FAERS Safety Report 8889727 (Version 1)
Quarter: 2012Q4

REPORT INFORMATION
  Report Type: Spontaneous
  Country: US (occurrence: None)
  Receive Date: 20121105
  Receipt Date: 20121105
  Transmission Date: 20130627
  Serious: Yes (Other)
  Sender: FDA-Public Use
  Company Number: None

PATIENT
  Age: 60 Year
  Sex: Male
  Weight: 96.4 kg

DRUGS (2)
  1. ONGLYZA [Suspect]
     Indication: DIABETES
     Dosage: 2.5 MG once ORAL
     Route: 048
     Dates: start: 20120724
  2. GLYBURIDE [Suspect]
     Indication: DIABETES
     Dosage: 5MG TID ORAL
     Route: 048
     Dates: start: 20120724

REACTIONS (2)
  - Paranoia [None]
  - Nightmare [None]
